FAERS Safety Report 23782128 (Version 2)
Quarter: 2024Q2

REPORT INFORMATION
  Report Type: Report from Study
  Country: MX (occurrence: MX)
  Receive Date: 20240425
  Receipt Date: 20240508
  Transmission Date: 20240715
  Serious: Yes (Hospitalization)
  Sender: FDA-Public Use
  Company Number: MX-002147023-NVSC2024MX086255

PATIENT
  Sex: Female
  Weight: 70 kg

DRUGS (4)
  1. EXFORGE HCT [Suspect]
     Active Substance: AMLODIPINE BESYLATE\HYDROCHLOROTHIAZIDE\VALSARTAN
     Indication: Hypertension
     Dosage: 1 DOSAGE FORM, (5/160/1 2.5 MG), QD (IN THE MORNING)
     Route: 048
     Dates: start: 20210814, end: 20220930
  2. EXFORGE HCT [Suspect]
     Active Substance: AMLODIPINE BESYLATE\HYDROCHLOROTHIAZIDE\VALSARTAN
     Dosage: 0.5 DOSAGE FORM (10/320/25 MG), Q12H
     Route: 048
     Dates: start: 20221001, end: 202210
  3. EXFORGE HCT [Suspect]
     Active Substance: AMLODIPINE BESYLATE\HYDROCHLOROTHIAZIDE\VALSARTAN
     Dosage: 5/160/12.5MG (1 TABLET IN THE MORNING AND AND ? TABLET OF IT AT NIGHT)
     Route: 048
     Dates: start: 20230808, end: 20240209
  4. EXFORGE HCT [Suspect]
     Active Substance: AMLODIPINE BESYLATE\HYDROCHLOROTHIAZIDE\VALSARTAN
     Dosage: 1 DOSAGE FORM, (5/320MG) QD
     Route: 048
     Dates: start: 20240210

REACTIONS (14)
  - Blood pressure decreased [Recovered/Resolved]
  - Blood potassium increased [Recovered/Resolved]
  - Bradycardia [Recovered/Resolved]
  - Blood pressure decreased [Recovered/Resolved]
  - Hand deformity [Unknown]
  - Osteoarthritis [Unknown]
  - Joint swelling [Unknown]
  - Arthralgia [Unknown]
  - Gait disturbance [Unknown]
  - Blood pressure increased [Recovered/Resolved]
  - Peripheral swelling [Recovering/Resolving]
  - Erythema [Unknown]
  - Skin discolouration [Not Recovered/Not Resolved]
  - Wrong technique in product usage process [Unknown]

NARRATIVE: CASE EVENT DATE: 20220101
